FAERS Safety Report 4741950-6 (Version None)
Quarter: 2005Q3

REPORT INFORMATION
  Report Type: 
  Country: None (occurrence: None)
  Receive Date: 20050801
  Receipt Date: 20050610
  Transmission Date: 20060218
  Serious: No
  Sender: FDA-Public Use
  Company Number: 2005PV000029

PATIENT
  Age: 52 Year
  Sex: Female
  Weight: 118.3888 kg

DRUGS (11)
  1. BYETTA [Suspect]
     Indication: DIABETES MELLITUS NON-INSULIN-DEPENDENT
     Dosage: 5 UG;BID;SC
     Route: 058
     Dates: start: 20050609, end: 20050613
  2. METFORMIN [Concomitant]
  3. AMARYL [Concomitant]
  4. AVALIDE [Concomitant]
  5. TOPROL-XL [Concomitant]
  6. SYNTHROID [Concomitant]
  7. FLUOXETINE [Concomitant]
  8. CELEBREX [Concomitant]
  9. HYOSCYAMINE [Concomitant]
  10. CALCIUM GLUCONATE [Concomitant]
  11. MULTI-VITAMINS [Concomitant]

REACTIONS (13)
  - ANOREXIA [None]
  - ASTHENIA [None]
  - CHILLS [None]
  - COUGH [None]
  - DIARRHOEA [None]
  - ERYTHEMA [None]
  - LYMPHADENOPATHY [None]
  - NAUSEA [None]
  - PHARYNGOLARYNGEAL PAIN [None]
  - PYREXIA [None]
  - SINUSITIS [None]
  - VOMITING [None]
  - WEIGHT DECREASED [None]
